FAERS Safety Report 6862186-9 (Version None)
Quarter: 2010Q3

REPORT INFORMATION
  Report Type: 
  Country: None (occurrence: None)
  Receive Date: 20100721
  Receipt Date: 20100719
  Transmission Date: 20110219
  Serious: Yes (Other)
  Sender: FDA-Public Use
  Company Number: US-RB-012846-10

PATIENT
  Age: 18 Year
  Sex: Male

DRUGS (1)
  1. DELSYM [Suspect]
     Dosage: PATIENT DRANK AN ENTIRE 5 OUNCE BOTTLE
     Route: 048
     Dates: start: 20100717

REACTIONS (5)
  - DISORIENTATION [None]
  - DRUG ABUSE [None]
  - FATIGUE [None]
  - FEELING ABNORMAL [None]
  - FEELING OF RELAXATION [None]
